FAERS Safety Report 18200950 (Version 2)
Quarter: 2025Q3

REPORT INFORMATION
  Report Type: Spontaneous
  Country: EU (occurrence: EU)
  Receive Date: 20200827
  Receipt Date: 20250901
  Transmission Date: 20251020
  Serious: Yes (Death, Hospitalization, Other)
  Sender: AUROBINDO
  Company Number: EU-002147023-PHHY2013PT163318

PATIENT
  Age: 42 Year
  Sex: Male

DRUGS (18)
  1. ACYCLOVIR [Suspect]
     Active Substance: ACYCLOVIR
     Indication: Enterococcal infection
     Route: 065
  2. CASPOFUNGIN [Suspect]
     Active Substance: CASPOFUNGIN
     Indication: Septic shock
     Route: 065
  3. CASPOFUNGIN [Suspect]
     Active Substance: CASPOFUNGIN
     Indication: Pneumonia
     Route: 065
  4. CYCLOSPORINE [Suspect]
     Active Substance: CYCLOSPORINE
     Indication: Graft versus host disease in gastrointestinal tract
     Route: 065
  5. CYCLOSPORINE [Suspect]
     Active Substance: CYCLOSPORINE
     Indication: Chronic graft versus host disease in skin
     Route: 065
  6. CYCLOSPORINE [Suspect]
     Active Substance: CYCLOSPORINE
     Indication: Chronic graft versus host disease in liver
     Route: 065
  7. MEROPENEM [Suspect]
     Active Substance: MEROPENEM
     Indication: Enterococcal infection
     Route: 065
  8. PIPERACILLIN AND TAZOBACTAM [Suspect]
     Active Substance: PIPERACILLIN SODIUM\TAZOBACTAM SODIUM
     Indication: Pneumonia
     Route: 065
  9. PIPERACILLIN AND TAZOBACTAM [Suspect]
     Active Substance: PIPERACILLIN SODIUM\TAZOBACTAM SODIUM
     Indication: Septic shock
     Route: 065
  10. VANCOMYCIN [Suspect]
     Active Substance: VANCOMYCIN
     Indication: Enterococcal infection
     Route: 065
  11. ATOVAQUONE [Suspect]
     Active Substance: ATOVAQUONE
     Indication: Prophylaxis
     Route: 065
  12. ATOVAQUONE [Suspect]
     Active Substance: ATOVAQUONE
     Indication: Septic shock
     Route: 065
  13. CIDOFOVIR [Suspect]
     Active Substance: CIDOFOVIR
     Indication: Pneumonia
     Route: 065
  14. CIDOFOVIR [Suspect]
     Active Substance: CIDOFOVIR
     Indication: Septic shock
     Route: 065
  15. CUBICIN [Suspect]
     Active Substance: DAPTOMYCIN
     Indication: Septic shock
     Route: 065
  16. CUBICIN [Suspect]
     Active Substance: DAPTOMYCIN
     Route: 065
  17. POSACONAZOLE [Suspect]
     Active Substance: POSACONAZOLE
     Indication: Prophylaxis
     Route: 065
  18. GRANULOCYTE COLONY-STIMULATING FACTOR NOS [Concomitant]
     Active Substance: GRANULOCYTE COLONY-STIMULATING FACTOR NOS
     Indication: Congenital aplasia
     Route: 065

REACTIONS (16)
  - Septic shock [Fatal]
  - Skin necrosis [Unknown]
  - Adenovirus infection [Unknown]
  - Renal failure [Unknown]
  - Skin lesion [Unknown]
  - Drug resistance [Unknown]
  - Cystitis haemorrhagic [Unknown]
  - Bacteraemia [Unknown]
  - Pneumonia [Unknown]
  - Cytomegalovirus infection reactivation [Unknown]
  - Enterococcal infection [Unknown]
  - Type 2 diabetes mellitus [Unknown]
  - Fusarium infection [Unknown]
  - Enterocolitis [Unknown]
  - Papule [Unknown]
  - Drug ineffective [Unknown]
